FAERS Safety Report 25342533 (Version 1)
Quarter: 2025Q2

REPORT INFORMATION
  Report Type: Spontaneous
  Country: US (occurrence: US)
  Receive Date: 20250521
  Receipt Date: 20250521
  Transmission Date: 20250717
  Serious: No
  Sender: CATALYST PHARMA
  Company Number: US-CATALYST PHARMACEUTICALS-US-CATA-25-00445

PATIENT
  Sex: Male
  Weight: 38.549 kg

DRUGS (3)
  1. AGAMREE [Suspect]
     Active Substance: VAMOROLONE
     Indication: Duchenne muscular dystrophy
     Route: 048
     Dates: start: 20240520, end: 202410
  2. AGAMREE [Suspect]
     Active Substance: VAMOROLONE
     Dosage: 4.5 ML DAILY
     Route: 048
     Dates: start: 20241029
  3. LISINOPRIL [Concomitant]
     Active Substance: LISINOPRIL
     Indication: Cardiovascular event prophylaxis
     Route: 048

REACTIONS (2)
  - Weight increased [Not Recovered/Not Resolved]
  - Increased appetite [Not Recovered/Not Resolved]
